FAERS Safety Report 24895173 (Version 1)
Quarter: 2025Q1

REPORT INFORMATION
  Report Type: Spontaneous
  Country: US (occurrence: None)
  Receive Date: 20250127
  Receipt Date: 20250127
  Transmission Date: 20250409
  Serious: Yes (Life-Threatening, Hospitalization)
  Sender: FDA-CTU
  Company Number: None

PATIENT
  Age: 56 Year
  Sex: Male

DRUGS (1)
  1. TESTOSTERONE ENANTHATE [Suspect]
     Active Substance: TESTOSTERONE ENANTHATE
     Route: 030
     Dates: start: 20231101, end: 20241111

REACTIONS (6)
  - Pain in extremity [None]
  - Connective tissue inflammation [None]
  - Haemorrhage [None]
  - Respiratory failure [None]
  - Haemoptysis [None]
  - Resorption bone increased [None]

NARRATIVE: CASE EVENT DATE: 20250118
